FAERS Safety Report 16584699 (Version 1)
Quarter: 2019Q3

REPORT INFORMATION
  Report Type: Spontaneous
  Country: US (occurrence: US)
  Receive Date: 20190716
  Receipt Date: 20190716
  Transmission Date: 20191004
  Serious: No
  Sender: FDA-Public Use
  Company Number: None

PATIENT
  Age: 65 Year
  Sex: Male
  Weight: 65.25 kg

DRUGS (1)
  1. CLONAZEPAM 0.5MG [Suspect]
     Active Substance: CLONAZEPAM
     Indication: TORTICOLLIS
     Dosage: ?          QUANTITY:.5 TABLET(S);?
     Route: 048

REACTIONS (4)
  - Product physical consistency issue [None]
  - Product physical issue [None]
  - Product substitution issue [None]
  - Incorrect dose administered [None]

NARRATIVE: CASE EVENT DATE: 20190410
